FAERS Safety Report 23612188 (Version 1)
Quarter: 2024Q1

REPORT INFORMATION
  Report Type: Spontaneous
  Country: CN (occurrence: CN)
  Receive Date: 20240308
  Receipt Date: 20240308
  Transmission Date: 20240409
  Serious: Yes (Other)
  Sender: FDA-Public Use
  Company Number: CN-DSJP-DSJ-2024-109731

PATIENT
  Age: 90 Year
  Sex: Female
  Weight: 55 kg

DRUGS (1)
  1. EDOXABAN [Suspect]
     Active Substance: EDOXABAN
     Indication: Anticoagulant therapy
     Dosage: 15 MG, QD
     Route: 048
     Dates: start: 20240129, end: 20240206

REACTIONS (2)
  - Renal impairment [Unknown]
  - Haematuria [Recovering/Resolving]

NARRATIVE: CASE EVENT DATE: 20240206
